FAERS Safety Report 8178831-4 (Version None)
Quarter: 2012Q1

REPORT INFORMATION
  Report Type: 
  Country: None (occurrence: None)
  Receive Date: 20120302
  Receipt Date: 20120216
  Transmission Date: 20120608
  Serious: Yes (Congenital Anomaly)
  Sender: FDA-Public Use
  Company Number: NL-AMGEN-NLDSP2011017815

PATIENT
  Sex: Male

DRUGS (4)
  1. PREDNISONE [Suspect]
     Dosage: 7.5 MG, 1X/DAY
     Route: 064
     Dates: start: 20110323
  2. ENBREL [Suspect]
     Dosage: 50 MG, WEEKLY
     Route: 064
     Dates: start: 20110417
  3. PREDNISONE [Suspect]
     Dosage: UNK
     Route: 064
     Dates: start: 20090701
  4. ENBREL [Suspect]
     Indication: RHEUMATOID ARTHRITIS
     Dosage: UNK
     Route: 064

REACTIONS (4)
  - MATERNAL DRUGS AFFECTING FOETUS [None]
  - MATERNAL EXPOSURE TIMING UNSPECIFIED [None]
  - FOOT DEFORMITY [None]
  - TALIPES [None]
